FAERS Safety Report 10970964 (Version 7)
Quarter: 2015Q4

REPORT INFORMATION
  Report Type: Report from Study
  Country: IN (occurrence: IN)
  Receive Date: 20150331
  Receipt Date: 20151118
  Transmission Date: 20160304
  Serious: Yes (Other)
  Sender: FDA-Public Use
  Company Number: PHHO2015IN004542

PATIENT
  Age: 41 Year
  Sex: Female
  Weight: 49.5 kg

DRUGS (28)
  1. FOLVITE [Concomitant]
     Active Substance: FOLIC ACID
     Indication: VITAMIN SUPPLEMENTATION
  2. FOLIC ACID. [Concomitant]
     Active Substance: FOLIC ACID
     Dosage: 1.5 MG, QD
     Route: 048
     Dates: start: 20150630
  3. RABEPRAZOLE [Concomitant]
     Active Substance: RABEPRAZOLE
     Indication: ANTACID THERAPY
     Dosage: 20 MG, QD
     Route: 048
     Dates: start: 20150319, end: 20150521
  4. METHOTREXATE [Concomitant]
     Active Substance: METHOTREXATE
     Indication: RHEUMATOID ARTHRITIS
     Dosage: 10 MG, QW
     Route: 048
     Dates: start: 20130202
  5. PROLOMET AM [Concomitant]
     Indication: HYPERTENSION
     Dosage: 30 MG, (5/25 MG) QD
     Route: 048
     Dates: start: 20130920
  6. ONCOTREX-PF [Concomitant]
     Indication: RHEUMATOID ARTHRITIS
     Dosage: 10 MG, QW
     Route: 048
     Dates: start: 20130202
  7. ETOSHINE [Concomitant]
     Indication: ANALGESIC THERAPY
     Dosage: 90 MG, QD
     Route: 048
     Dates: start: 20140108
  8. ETORICOXIB [Concomitant]
     Active Substance: ETORICOXIB
     Indication: ANALGESIC THERAPY
     Dosage: 90 MG, QD
     Route: 048
     Dates: start: 20140108
  9. FERROUS FUMARATE [Concomitant]
     Active Substance: FERROUS FUMARATE
     Dosage: 350 MG, QD
     Route: 048
     Dates: start: 20150504, end: 20150604
  10. FOLIC ACID. [Concomitant]
     Active Substance: FOLIC ACID
     Indication: VITAMIN SUPPLEMENTATION
     Dosage: 5 MG, QD
     Route: 048
     Dates: start: 20131115
  11. VITAMIN C [Concomitant]
     Active Substance: ASCORBIC ACID
     Dosage: 150 MG, QD
     Route: 048
     Dates: start: 20150504, end: 20150604
  12. FERROUS FUMARATE [Concomitant]
     Active Substance: FERROUS FUMARATE
     Dosage: 350 MG, QD
     Route: 048
     Dates: start: 20150630
  13. FOLVITE [Concomitant]
     Active Substance: FOLIC ACID
     Indication: RHEUMATOID ARTHRITIS
     Dosage: 5 MG, QD
     Route: 048
     Dates: start: 20131115
  14. AMLODIPINE [Concomitant]
     Active Substance: AMLODIPINE BESYLATE
     Indication: HYPERTENSION
     Dosage: 25 MG, QD
     Route: 048
     Dates: start: 20130920
  15. PROPRANOLOL [Concomitant]
     Active Substance: PROPRANOLOL\PROPRANOLOL HYDROCHLORIDE
     Indication: HYPERTENSION
     Dosage: 10 MG, QD
     Route: 048
     Dates: start: 20131022
  16. PREDNISOLONE. [Concomitant]
     Active Substance: PREDNISOLONE
     Indication: RHEUMATOID ARTHRITIS
     Dosage: 5 MG, QD
     Route: 048
     Dates: start: 1998
  17. VITAMIN C [Concomitant]
     Active Substance: ASCORBIC ACID
     Dosage: 150 MG, QD
     Route: 048
     Dates: start: 20150630
  18. ECOSPRIN AV [Concomitant]
     Indication: MYOCARDIAL ISCHAEMIA
     Dosage: 85 (75+10) MG, QD
     Route: 048
     Dates: start: 20131001
  19. ATORVASTATIN [Concomitant]
     Active Substance: ATORVASTATIN
     Indication: ISCHAEMIA
     Dosage: 10 MG, QD
     Route: 048
     Dates: start: 20131001
  20. ASPIRIN. [Concomitant]
     Active Substance: ASPIRIN
     Indication: ISCHAEMIA
     Dosage: 75 MG, QD
     Route: 048
     Dates: start: 20131001
  21. FOLIC ACID. [Concomitant]
     Active Substance: FOLIC ACID
     Dosage: 1.5 MG, QD
     Route: 048
     Dates: start: 20150504, end: 20150604
  22. VITAMIN B12 [Concomitant]
     Active Substance: CYANOCOBALAMIN
     Dosage: QD15MGC
     Route: 048
     Dates: start: 20150504, end: 20150604
  23. VITAMIN B12 [Concomitant]
     Active Substance: CYANOCOBALAMIN
     Dosage: 15MGC QD
     Route: 048
     Dates: start: 20150630
  24. AIN457 [Suspect]
     Active Substance: SECUKINUMAB
     Indication: RHEUMATOID ARTHRITIS
     Dosage: 75 MG/150MG
     Route: 058
     Dates: start: 20140403, end: 20150107
  25. CARBIMAZOLE [Concomitant]
     Active Substance: CARBIMAZOLE
     Indication: HYPERTHYROIDISM
     Dosage: 5 MG, QD
     Route: 048
     Dates: start: 20130929
  26. INDERAL [Concomitant]
     Active Substance: PROPRANOLOL HYDROCHLORIDE
     Indication: HYPERTENSION
     Dosage: 10 MG, QD
     Route: 048
     Dates: start: 20131022
  27. WYSOLONE [Concomitant]
     Active Substance: PREDNISOLONE
     Indication: RHEUMATOID ARTHRITIS
     Dosage: 5 MG, QD
     Route: 048
     Dates: start: 1998
  28. METOPROLOL [Concomitant]
     Active Substance: METOPROLOL
     Indication: HYPERTENSION
     Dosage: 5 MG, QD
     Route: 048
     Dates: start: 20130920

REACTIONS (1)
  - Pulmonary tuberculosis [Recovered/Resolved with Sequelae]

NARRATIVE: CASE EVENT DATE: 20150319
